FAERS Safety Report 7141070-X (Version None)
Quarter: 2010Q4

REPORT INFORMATION
  Report Type: 
  Country: None (occurrence: None)
  Receive Date: 20101122
  Receipt Date: 20101111
  Transmission Date: 20110411
  Serious: Yes (Other)
  Sender: FDA-Public Use
  Company Number: GB-ACCORD-006699

PATIENT
  Age: 39 Year
  Sex: Female
  Weight: 82 kg

DRUGS (10)
  1. PACLITAXEL [Suspect]
     Indication: PRODUCT USED FOR UNKNOWN INDICATION
     Dates: end: 20100101
  2. CHLORPHENIRAMINE MALEATE [Concomitant]
  3. DEXAMETHASONE [Concomitant]
  4. GABAPENTIN [Concomitant]
  5. MOVICOL [Concomitant]
  6. OMEPRAZOLE [Concomitant]
  7. OXYCODON [Concomitant]
  8. PARACETAMOL [Concomitant]
  9. RANITIDINE [Concomitant]
  10. SERTRALINE HYDROCHLORIDE [Concomitant]

REACTIONS (2)
  - DRUG HYPERSENSITIVITY [None]
  - WHEEZING [None]
